FAERS Safety Report 19278340 (Version 1)
Quarter: 2021Q2

REPORT INFORMATION
  Report Type: Spontaneous
  Country: US (occurrence: US)
  Receive Date: 20210520
  Receipt Date: 20210520
  Transmission Date: 20210717
  Serious: Yes (Life-Threatening, Hospitalization, Other)
  Sender: FDA-Public Use
  Company Number: US-DRREDDYS-USA/USA/21/0135540

PATIENT
  Age: 7 Year
  Sex: Male

DRUGS (3)
  1. METHOTREXATE. [Interacting]
     Active Substance: METHOTREXATE
     Indication: PHILADELPHIA POSITIVE ACUTE LYMPHOCYTIC LEUKAEMIA
  2. METHOTREXATE. [Interacting]
     Active Substance: METHOTREXATE
     Dosage: HIGH?DOSE METHOTREXATE CYCLE 2?4
     Route: 048
  3. IMATINIB MESYLATE TABLETS [Suspect]
     Active Substance: IMATINIB MESYLATE
     Indication: PHILADELPHIA POSITIVE ACUTE LYMPHOCYTIC LEUKAEMIA

REACTIONS (5)
  - Thrombocytopenia [Unknown]
  - Drug interaction [Unknown]
  - Acute kidney injury [Unknown]
  - Neutropenia [Unknown]
  - Toxicity to various agents [Recovered/Resolved]
